FAERS Safety Report 8576178-5 (Version None)
Quarter: 2012Q3

REPORT INFORMATION
  Report Type: 
  Country: None (occurrence: None)
  Receive Date: 20120807
  Receipt Date: 20120802
  Transmission Date: 20120928
  Serious: Yes (Other)
  Sender: FDA-Public Use
  Company Number: GB-PFIZER INC-2012187998

PATIENT
  Age: 34 Year
  Sex: Female

DRUGS (4)
  1. SITAGLIPTIN [Concomitant]
  2. ATORVASTATIN [Suspect]
     Indication: BLOOD CHOLESTEROL
     Dosage: 80 MG, UNK
     Route: 048
  3. ROSUVASTATIN [Suspect]
     Indication: BLOOD GLUCOSE INCREASED
     Dosage: UNK
  4. FENOFIBRATE [Concomitant]

REACTIONS (10)
  - FATIGUE [None]
  - BLOOD GLUCOSE INCREASED [None]
  - THIRST [None]
  - CHROMATURIA [None]
  - PAIN IN EXTREMITY [None]
  - GROIN PAIN [None]
  - BURNING SENSATION [None]
  - ABDOMINAL PAIN UPPER [None]
  - PARAESTHESIA [None]
  - MYALGIA [None]
